FAERS Safety Report 23324970 (Version 1)
Quarter: 2023Q4

REPORT INFORMATION
  Report Type: Spontaneous
  Country: US (occurrence: None)
  Receive Date: 20231221
  Receipt Date: 20231221
  Transmission Date: 20240110
  Serious: Yes (Other)
  Sender: FDA-Public Use
  Company Number: US-ROCHE-3476544

PATIENT
  Age: 62 Year
  Sex: Female
  Weight: 79.45 kg

DRUGS (5)
  1. ALECENSA [Suspect]
     Active Substance: ALECTINIB HYDROCHLORIDE
     Indication: Non-small cell lung cancer stage IV
     Dosage: MORNING AND EVENING
     Route: 048
     Dates: start: 20230906, end: 20231130
  2. METOPROLOL [Concomitant]
     Active Substance: METOPROLOL
     Dosage: YES
     Route: 048
  3. ATORVASTATIN [Concomitant]
     Active Substance: ATORVASTATIN
     Indication: Transient ischaemic attack
     Route: 048
  4. XARELTO [Concomitant]
     Active Substance: RIVAROXABAN
     Dosage: YES
     Route: 048
  5. CALCIUM [Concomitant]
     Active Substance: CALCIUM
     Dosage: YES
     Route: 048

REACTIONS (3)
  - Hepatic enzyme increased [Recovering/Resolving]
  - Haemoglobin decreased [Recovering/Resolving]
  - Lung neoplasm malignant [Not Recovered/Not Resolved]
